FAERS Safety Report 7020191-6 (Version None)
Quarter: 2010Q3

REPORT INFORMATION
  Report Type: 
  Country: None (occurrence: None)
  Receive Date: 20100929
  Receipt Date: 20100914
  Transmission Date: 20110219
  Serious: Yes (Other)
  Sender: FDA-Public Use
  Company Number: PHHY2010US61245

PATIENT
  Sex: Female

DRUGS (3)
  1. DIOVAN [Suspect]
     Dosage: 160 MG
  2. NEXIUM [Concomitant]
  3. ALLOPURINOL [Concomitant]
     Dosage: 300 MG OD

REACTIONS (2)
  - DIZZINESS [None]
  - NEPHROLITHIASIS [None]
